FAERS Safety Report 21044695 (Version 2)
Quarter: 2022Q3

REPORT INFORMATION
  Report Type: Spontaneous
  Country: US (occurrence: US)
  Receive Date: 20220705
  Receipt Date: 20220729
  Transmission Date: 20221027
  Serious: Yes (Other)
  Sender: FDA-Public Use
  Company Number: US-GBT-013752

PATIENT
  Sex: Male

DRUGS (1)
  1. OXBRYTA [Suspect]
     Active Substance: VOXELOTOR
     Indication: Sickle cell disease
     Route: 048
     Dates: start: 20220509

REACTIONS (7)
  - Intracranial aneurysm [Unknown]
  - Therapy cessation [Unknown]
  - Product dose omission issue [Unknown]
  - Hypoaesthesia [Recovered/Resolved]
  - Fatigue [Unknown]
  - Defaecation urgency [Unknown]
  - Diarrhoea [Unknown]

NARRATIVE: CASE EVENT DATE: 20220101
